FAERS Safety Report 14991142 (Version 1)
Quarter: 2018Q2

REPORT INFORMATION
  Report Type: Spontaneous
  Country: GB (occurrence: GB)
  Receive Date: 20180608
  Receipt Date: 20180608
  Transmission Date: 20180711
  Serious: Yes (Other)
  Sender: FDA-Public Use
  Company Number: GB-MYLANLABS-2018M1038778

PATIENT
  Age: 35 Year
  Sex: Male

DRUGS (12)
  1. FENTANYL. [Suspect]
     Active Substance: FENTANYL
     Indication: PERIOPERATIVE ANALGESIA
     Dosage: 40MICROGRAM WAS ADMINISTERED IN DIVIDED DOSES
     Route: 065
  2. PROPOFOL. [Suspect]
     Active Substance: PROPOFOL
     Dosage: 0.09 MG/KG, QMINUTE
     Route: 041
  3. REMIFENTANIL [Suspect]
     Active Substance: REMIFENTANIL
     Indication: SEDATIVE THERAPY
     Dosage: 0.05 ?G/KG, QMINUTE
     Route: 041
  4. CEFUROXIME. [Concomitant]
     Active Substance: CEFUROXIME
     Indication: PRODUCT USED FOR UNKNOWN INDICATION
     Dosage: 1.5 G
     Route: 065
  5. LABETALOL [Concomitant]
     Active Substance: LABETALOL\LABETALOL HYDROCHLORIDE
     Indication: BLOOD PRESSURE MEASUREMENT
     Dosage: UNK
     Route: 065
  6. HYDROXYCHLOROQUINE [Concomitant]
     Active Substance: HYDROXYCHLOROQUINE
     Indication: PALINDROMIC RHEUMATISM
     Route: 065
  7. DEXAMETHASONE. [Concomitant]
     Active Substance: DEXAMETHASONE
     Indication: PRODUCT USED FOR UNKNOWN INDICATION
     Dosage: 8 MG
     Route: 065
  8. EPINEPHRINE. [Concomitant]
     Active Substance: EPINEPHRINE
     Indication: PRODUCT USED FOR UNKNOWN INDICATION
     Dosage: INCISION WAS INFILTRATED WITH A LIDOCAINE 2% WITH A 1:100,000 CONCENTRATION OF EPINEPHRINE
     Route: 065
  9. LIDOCAINE. [Concomitant]
     Active Substance: LIDOCAINE
     Indication: PRODUCT USED FOR UNKNOWN INDICATION
     Dosage: INCISION WAS INFILTRATED WITH A LIDOCAINE 2% WITH A 1:100,000 CONCENTRATION OF EPINEPHRINE
     Route: 065
  10. PROPOFOL. [Suspect]
     Active Substance: PROPOFOL
     Indication: SEDATIVE THERAPY
     Dosage: 0.02 MG/KG, QMINUTE
     Route: 041
  11. MORPHINE [Concomitant]
     Active Substance: MORPHINE
     Indication: PRODUCT USED FOR UNKNOWN INDICATION
     Dosage: 10 MG
     Route: 048
  12. MIDAZOLAM [Suspect]
     Active Substance: MIDAZOLAM HYDROCHLORIDE
     Indication: PERIOPERATIVE ANALGESIA
     Dosage: 2MG WAS ADMINISTERED IN DIVIDED DOSES
     Route: 065

REACTIONS (3)
  - Hypoventilation [Unknown]
  - Oxygen saturation decreased [Recovered/Resolved]
  - Obstructive airways disorder [Recovering/Resolving]
